FAERS Safety Report 12119222 (Version 1)
Quarter: 2016Q1

REPORT INFORMATION
  Report Type: Spontaneous
  Country: US (occurrence: None)
  Receive Date: 20160225
  Receipt Date: 20160225
  Transmission Date: 20160526
  Serious: No
  Sender: FDA-Public Use
  Company Number: None

PATIENT
  Age: 50 Year
  Sex: Female

DRUGS (13)
  1. LASIX [Concomitant]
     Active Substance: FUROSEMIDE
  2. SPRYCEL [Suspect]
     Active Substance: DASATINIB
     Indication: NEOPLASM MALIGNANT
     Route: 048
     Dates: start: 20150129
  3. OXYCODONE [Concomitant]
     Active Substance: OXYCODONE
  4. ATIVAN [Concomitant]
     Active Substance: LORAZEPAM
  5. VITAMIN C [Concomitant]
     Active Substance: ASCORBIC ACID
  6. BENADRYL [Concomitant]
     Active Substance: DIPHENHYDRAMINE HYDROCHLORIDE
  7. LORAZEPAM. [Concomitant]
     Active Substance: LORAZEPAM
  8. ONDANSETRON [Concomitant]
     Active Substance: ONDANSETRON
  9. ALLOPURINOL. [Concomitant]
     Active Substance: ALLOPURINOL
  10. EXCEDRIN [Concomitant]
     Active Substance: ACETAMINOPHEN\ASPIRIN\CAFFEINE
  11. FIBER [Concomitant]
     Active Substance: PSYLLIUM HUSK
  12. MAGNESIUM [Concomitant]
     Active Substance: MAGNESIUM
  13. VITAMIN D [Concomitant]
     Active Substance: CHOLECALCIFEROL

REACTIONS (4)
  - Visual acuity reduced [None]
  - Oral surgery [None]
  - Gingival disorder [None]
  - Tooth disorder [None]

NARRATIVE: CASE EVENT DATE: 201505
